FAERS Safety Report 10547725 (Version 1)
Quarter: 2014Q4

REPORT INFORMATION
  Report Type: Spontaneous
  Country: US (occurrence: None)
  Receive Date: 20141027
  Receipt Date: 20141027
  Transmission Date: 20150529
  Serious: Yes (Life-Threatening, Hospitalization, Other)
  Sender: FDA-Public Use
  Company Number: None

PATIENT
  Age: 46 Year
  Sex: Male
  Weight: 93.44 kg

DRUGS (2)
  1. ZANAFLEX [Suspect]
     Active Substance: TIZANIDINE HYDROCHLORIDE
     Indication: MYALGIA
     Dosage: 1 PILL
     Route: 048
     Dates: start: 20141002, end: 20141002
  2. ZANAFLEX [Suspect]
     Active Substance: TIZANIDINE HYDROCHLORIDE
     Indication: INSOMNIA
     Dosage: 1 PILL
     Route: 048
     Dates: start: 20141002, end: 20141002

REACTIONS (8)
  - Somnolence [None]
  - Imprisonment [None]
  - Abnormal behaviour [None]
  - Withdrawal syndrome [None]
  - Aggression [None]
  - Unresponsive to stimuli [None]
  - Hallucination [None]
  - Memory impairment [None]

NARRATIVE: CASE EVENT DATE: 20141002
